FAERS Safety Report 16563049 (Version 2)
Quarter: 2019Q3

REPORT INFORMATION
  Report Type: Spontaneous
  Country: US (occurrence: US)
  Receive Date: 20190711
  Receipt Date: 20190913
  Transmission Date: 20191004
  Serious: Yes (Other)
  Sender: FDA-Public Use
  Company Number: US-ELI_LILLY_AND_COMPANY-US201907001968

PATIENT
  Sex: Male

DRUGS (7)
  1. LISINOPRIL. [Concomitant]
     Active Substance: LISINOPRIL
     Indication: HYPERTENSION
  2. MELOXICAM. [Concomitant]
     Active Substance: MELOXICAM
     Indication: INTERVERTEBRAL DISC DEGENERATION
  3. DEXTROAMPHETAMINE HYDROCHLORIDE [Concomitant]
     Active Substance: DEXTROAMPHETAMINE HYDROCHLORIDE
     Indication: NARCOLEPSY
  4. ATORVASTATIN [Concomitant]
     Active Substance: ATORVASTATIN
     Indication: HYPERCHOLESTEROLAEMIA
  5. VIAGRA [Suspect]
     Active Substance: SILDENAFIL CITRATE
     Indication: ERECTILE DYSFUNCTION
     Dosage: 100 MG, WEEKLY (1/W)
     Route: 065
     Dates: start: 20110209, end: 20151230
  6. VIAGRA [Suspect]
     Active Substance: SILDENAFIL CITRATE
     Dosage: 100 UNK
     Route: 065
     Dates: start: 20120601, end: 20141205
  7. CIALIS [Suspect]
     Active Substance: TADALAFIL
     Indication: ERECTILE DYSFUNCTION
     Dosage: 20 MG, WEEKLY (1/W)
     Route: 065
     Dates: start: 20141103

REACTIONS (1)
  - Malignant melanoma [Unknown]

NARRATIVE: CASE EVENT DATE: 20150317
